FAERS Safety Report 17355140 (Version 1)
Quarter: 2020Q1

REPORT INFORMATION
  Report Type: Report from Study
  Country: US (occurrence: US)
  Receive Date: 20200131
  Receipt Date: 20200131
  Transmission Date: 20200409
  Serious: Yes (Hospitalization)
  Sender: FDA-Public Use
  Company Number: US-ACTELION-A-NJ2019-192961

PATIENT
  Sex: Female
  Weight: 81.63 kg

DRUGS (2)
  1. CEFDINIR. [Suspect]
     Active Substance: CEFDINIR
     Indication: PRODUCT USED FOR UNKNOWN INDICATION
     Route: 065
  2. OPSUMIT [Suspect]
     Active Substance: MACITENTAN
     Indication: PULMONARY ARTERIAL HYPERTENSION
     Dosage: 10 MG, QD
     Route: 048

REACTIONS (9)
  - Cough [Unknown]
  - Visual impairment [Unknown]
  - Epistaxis [Unknown]
  - Constipation [Unknown]
  - Crying [Unknown]
  - Adverse event [Unknown]
  - Fluid retention [Unknown]
  - Nasal congestion [Unknown]
  - Ear discomfort [Unknown]
